FAERS Safety Report 10409695 (Version 2)
Quarter: 2014Q3

REPORT INFORMATION
  Report Type: Spontaneous
  Country: US (occurrence: US)
  Receive Date: 20140826
  Receipt Date: 20140826
  Transmission Date: 20150326
  Serious: Yes (Hospitalization)
  Sender: FDA-Public Use
  Company Number: US-009507513-2009-194500-NL

PATIENT
  Sex: Female
  Weight: 86.18 kg

DRUGS (2)
  1. ALEVE [Concomitant]
     Active Substance: NAPROXEN SODIUM
     Indication: BACK PAIN
     Dates: start: 20070912, end: 20070917
  2. NUVARING [Suspect]
     Active Substance: ETHINYL ESTRADIOL\ETONOGESTREL
     Indication: CONTRACEPTION
     Dosage: DOSE TEXT: 3 WEEKS IN, 1 WEEK OUT, CONTINUING: NO
     Dates: start: 200704, end: 200709

REACTIONS (4)
  - Thrombophlebitis septic [Recovering/Resolving]
  - Tendonitis [Unknown]
  - Deep vein thrombosis [Recovering/Resolving]
  - Animal bite [Unknown]

NARRATIVE: CASE EVENT DATE: 20070727
